FAERS Safety Report 4334778-2 (Version None)
Quarter: 2004Q2

REPORT INFORMATION
  Report Type: 
  Country: None (occurrence: None)
  Receive Date: 20040405
  Receipt Date: 20040324
  Transmission Date: 20050107
  Serious: Yes (Other)
  Sender: FDA-Public Use
  Company Number: EMADSS2003002421

PATIENT
  Age: 67 Year
  Sex: Female

DRUGS (5)
  1. REMICADE [Suspect]
     Indication: RHEUMATOID ARTHRITIS
     Dosage: 1 IN 1 AS NECESSARY, INTRAVENOUS DRIP
     Route: 041
     Dates: start: 20000329, end: 20030318
  2. METHOTREXATE [Concomitant]
  3. NONSTEROIDAL ANTI-INFLAMMATORY AGENT (NSAID'S) [Concomitant]
  4. CORTICOSTEROIDS (CORTICOSTEROIDS) [Concomitant]
  5. OMEPRAZOLE [Concomitant]

REACTIONS (3)
  - INTERVERTEBRAL DISCITIS [None]
  - LEUKOCYTURIA [None]
  - TUBERCULOSIS [None]
